FAERS Safety Report 8540326-3 (Version None)
Quarter: 2012Q3

REPORT INFORMATION
  Report Type: 
  Country: None (occurrence: None)
  Receive Date: 20120726
  Receipt Date: 20120717
  Transmission Date: 20120928
  Serious: No
  Sender: FDA-Public Use
  Company Number: US-BAYER-2012-072271

PATIENT
  Age: 46 Year
  Sex: Female

DRUGS (2)
  1. ACTHAR [Concomitant]
     Dosage: UNK
     Dates: start: 20120708, end: 20120712
  2. BETASERON [Suspect]
     Indication: MULTIPLE SCLEROSIS
     Dosage: 0.25 MG, QOD
     Route: 058

REACTIONS (2)
  - MUSCULAR WEAKNESS [None]
  - GAIT DISTURBANCE [None]
